FAERS Safety Report 8334386 (Version 2)
Quarter: 2013Q2

REPORT INFORMATION
  Report Type: Spontaneous
  Country: US (occurrence: US)
  Receive Date: 20111130
  Receipt Date: 20130426
  Transmission Date: 20140414
  Serious: Yes (Hospitalization)
  Sender: FDA-Public Use
  Company Number: US200906001549

PATIENT
  Age: 65 Year
  Sex: Male
  Weight: 103.86 kg

DRUGS (13)
  1. BYETTA PEN DISPOSABLE [Suspect]
     Indication: TYPE 2 DIABETES MELLITUS
     Route: 065
     Dates: start: 200608, end: 200704
  2. EXENATIDE UNK STRENGTH PEN, DISPOSABLE DEVICE [Concomitant]
  3. METFORMIN [Concomitant]
     Indication: TYPE 2 DIABETES MELLITUS
  4. ACTOS [Concomitant]
  5. MICARDIS HCT [Concomitant]
  6. NEXIUM [Concomitant]
  7. ASPIRIN [Concomitant]
  8. LIPITOR [Concomitant]
  9. ATENOLOL [Concomitant]
  10. CLAFORAN [Concomitant]
     Dates: start: 20070215
  11. PHENERGAN [Concomitant]
     Dates: start: 20070223
  12. LEVAQUIN [Concomitant]
     Dates: start: 20070223
  13. LORTAB [Concomitant]
     Dates: start: 20070223

REACTIONS (2)
  - Pancreatitis acute [Unknown]
  - Pancreatitis relapsing [Recovered/Resolved]
